FAERS Safety Report 14847401 (Version 2)
Quarter: 2018Q2

REPORT INFORMATION
  Report Type: Spontaneous
  Country: US (occurrence: US)
  Receive Date: 20180504
  Receipt Date: 20180605
  Transmission Date: 20180711
  Serious: Yes (Other)
  Sender: FDA-Public Use
  Company Number: US-PFIZER INC-2018183616

PATIENT
  Age: 62 Year
  Sex: Male

DRUGS (2)
  1. XELJANZ XR [Suspect]
     Active Substance: TOFACITINIB CITRATE
     Dosage: 11 MG, UNKNOWN FREQUENCY
  2. METHOTREXATE. [Concomitant]
     Active Substance: METHOTREXATE
     Dosage: UNK
     Route: 048

REACTIONS (6)
  - Pain [Unknown]
  - Condition aggravated [Not Recovered/Not Resolved]
  - Cellulitis [Unknown]
  - Back pain [Not Recovered/Not Resolved]
  - Abscess [Unknown]
  - Wound [Not Recovered/Not Resolved]
